FAERS Safety Report 16957186 (Version 1)
Quarter: 2019Q4

REPORT INFORMATION
  Report Type: Spontaneous
  Country: US (occurrence: US)
  Receive Date: 20191023
  Receipt Date: 20191023
  Transmission Date: 20200122
  Serious: No
  Sender: FDA-Public Use
  Company Number: None

PATIENT
  Age: 43 Year
  Sex: Female

DRUGS (4)
  1. TRAMADOL 50MG [Concomitant]
     Active Substance: TRAMADOL
  2. IIDOCAINE 5% PATCH [Concomitant]
  3. PREGABALIN. [Suspect]
     Active Substance: PREGABALIN
     Indication: NEURALGIA
     Route: 048
     Dates: start: 20190820, end: 20190920
  4. TIZANIDINE 2MG [Concomitant]
     Active Substance: TIZANIDINE

REACTIONS (5)
  - Fatigue [None]
  - Impaired work ability [None]
  - Feeling abnormal [None]
  - Product substitution issue [None]
  - Dysarthria [None]

NARRATIVE: CASE EVENT DATE: 20190820
